FAERS Safety Report 12175269 (Version 2)
Quarter: 2016Q1

REPORT INFORMATION
  Report Type: Report from Study
  Country: KR (occurrence: KR)
  Receive Date: 20160314
  Receipt Date: 20160330
  Transmission Date: 20160526
  Serious: No
  Sender: FDA-Public Use
  Company Number: KR-OTSUKA-2016_005927

PATIENT
  Age: 78 Year
  Sex: Female

DRUGS (17)
  1. HEALTHCAL [Concomitant]
     Indication: PRE-EXISTING DISEASE
     Dosage: 750 MG, QD
     Route: 048
     Dates: start: 20150530
  2. REMICUT SR [Concomitant]
     Indication: PRE-EXISTING DISEASE
     Dosage: 2 MG, QD
     Route: 048
     Dates: start: 20150608, end: 20150609
  3. CHLORPHENIRAMINE MALEATE. [Concomitant]
     Active Substance: CHLORPHENIRAMINE MALEATE
     Indication: PRE-EXISTING DISEASE
     Dosage: 4 MG, QD
     Route: 042
     Dates: start: 20150606, end: 20150615
  4. UCERAX [Concomitant]
     Indication: PRE-EXISTING DISEASE
     Dosage: 60 MG, QD
     Route: 048
     Dates: start: 20160608
  5. TAPOCIN [Concomitant]
     Indication: PRE-EXISTING DISEASE
     Dosage: 400 MG, QD
     Route: 042
     Dates: start: 20150531
  6. TOLVAPTAN [Suspect]
     Active Substance: TOLVAPTAN
     Indication: HYPONATRAEMIA
     Dosage: 15 MG, QD
     Route: 048
     Dates: start: 20150615
  7. AXIMAR [Concomitant]
     Indication: PRE-EXISTING DISEASE
     Dosage: 800 MG, QD
     Route: 048
     Dates: start: 20150525
  8. KETOTIFEN [Concomitant]
     Active Substance: KETOTIFEN
     Indication: PRE-EXISTING DISEASE
     Dosage: 2 MG, QD
     Route: 048
     Dates: start: 20150618, end: 20150619
  9. ISOTONIC SODIUM CHLORIDE SOLUTION [Concomitant]
     Active Substance: SODIUM CHLORIDE
     Indication: PRE-EXISTING DISEASE
     Dosage: 150 ML, QD
     Route: 042
     Dates: start: 20150525
  10. MEPTIN [Concomitant]
     Active Substance: PROCATEROL HYDROCHLORIDE
     Indication: PRE-EXISTING DISEASE
     Dosage: 75 MG, QD
     Route: 048
     Dates: start: 20150527
  11. ANORO ELLIPTA [Concomitant]
     Active Substance: UMECLIDINIUM BROMIDE\VILANTEROL TRIFENATATE
     Indication: PRE-EXISTING DISEASE
     Dosage: 25 MG, QD
     Route: 055
     Dates: start: 20150615
  12. POSPENEM [Concomitant]
     Indication: PRE-EXISTING DISEASE
     Dosage: 3 G, QD
     Route: 042
     Dates: start: 20150531
  13. SODIUM CHLORIDE. [Concomitant]
     Active Substance: SODIUM CHLORIDE
     Indication: PRE-EXISTING DISEASE
     Dosage: 20 ML, QD
     Route: 042
     Dates: start: 20150525
  14. PLOKON [Concomitant]
     Indication: PRE-EXISTING DISEASE
     Dosage: 3 MG, QD
     Route: 048
     Dates: start: 20150615, end: 20150618
  15. SODIUM CHLORIDE. [Concomitant]
     Active Substance: SODIUM CHLORIDE
     Indication: PRE-EXISTING DISEASE
     Dosage: 500 ML, QD
     Route: 042
     Dates: start: 20150526, end: 20150619
  16. TOLVAPTAN [Suspect]
     Active Substance: TOLVAPTAN
     Indication: INAPPROPRIATE ANTIDIURETIC HORMONE SECRETION
  17. REMICUT SR [Concomitant]
     Dosage: 3 MG, QD
     Route: 048
     Dates: start: 20150610

REACTIONS (1)
  - Insomnia [Recovered/Resolved]

NARRATIVE: CASE EVENT DATE: 20150615
